FAERS Safety Report 20773864 (Version 1)
Quarter: 2022Q2

REPORT INFORMATION
  Report Type: Spontaneous
  Country: US (occurrence: US)
  Receive Date: 20220502
  Receipt Date: 20220502
  Transmission Date: 20220721
  Serious: Yes (Other)
  Sender: FDA-Public Use
  Company Number: US-SA-2022SA153431

PATIENT
  Age: 59 Year
  Sex: Male

DRUGS (2)
  1. ALPROLIX [Suspect]
     Active Substance: EFTRENONACOG ALFA
     Dosage: 9000 U, BIW AND PRN
     Route: 042
  2. ALPROLIX [Suspect]
     Active Substance: EFTRENONACOG ALFA
     Dosage: 9000 U, BIW AND PRN
     Route: 042

REACTIONS (2)
  - Haemorrhage [Recovered/Resolved]
  - Tenderness [Recovering/Resolving]

NARRATIVE: CASE EVENT DATE: 20220401
